FAERS Safety Report 19515692 (Version 1)
Quarter: 2021Q3

REPORT INFORMATION
  Report Type: Spontaneous
  Country: US (occurrence: US)
  Receive Date: 20210709
  Receipt Date: 20210709
  Transmission Date: 20211014
  Serious: No
  Sender: FDA-Public Use
  Company Number: US-ASTELLAS-2020US030375

PATIENT
  Sex: Male

DRUGS (1)
  1. MYRBETRIQ [Suspect]
     Active Substance: MIRABEGRON
     Indication: PRODUCT USED FOR UNKNOWN INDICATION
     Dosage: 50 MG, ONCE DAILY (2 TABLETS OF 25MG  ONCE DAILY)
     Route: 065
     Dates: start: 202008

REACTIONS (5)
  - Urinary tract disorder [Unknown]
  - Dysuria [Unknown]
  - Urinary incontinence [Unknown]
  - Condition aggravated [Unknown]
  - Pollakiuria [Unknown]
